FAERS Safety Report 5902589-X (Version None)
Quarter: 2008Q3

REPORT INFORMATION
  Report Type: 
  Country: None (occurrence: None)
  Receive Date: 20080924
  Receipt Date: 20080912
  Transmission Date: 20090109
  Serious: Yes (Hospitalization)
  Sender: FDA-Public Use
  Company Number: 100#03#2008-04493

PATIENT
  Age: 60 Year
  Sex: Female

DRUGS (9)
  1. CITALOPRAM HYDROBROMIDE [Suspect]
     Indication: DEPRESSION
     Dosage: 10 MG ONCE DAILY ORAL
     Route: 048
     Dates: start: 20070306
  2. LANSOPRAZOLE [Suspect]
     Indication: DRUG USE FOR UNKNOWN INDICATION
     Dosage: 30 MG ONCE DAILY ORAL
     Route: 048
     Dates: start: 20080227
  3. NEBIVOLOL HCL [Suspect]
     Indication: HYPERTENSION
     Dosage: 5 MG ONCE DAILY ORAL
     Route: 048
     Dates: start: 20080424, end: 20080801
  4. ATORVASTATIN CALCIUM [Suspect]
     Indication: MYOCARDIAL ISCHAEMIA
     Dosage: 80 MG ONCE DAILY ORAL
     Route: 048
     Dates: start: 20070410, end: 20080801
  5. DICLOFENAC SODIUM [Suspect]
     Indication: FIBROMYALGIA
     Dosage: 50 MG ONCE DAILY ORAL
     Route: 048
     Dates: start: 20061218, end: 20080801
  6. PARAMOL (DIHYDROCODEINE TARTRATE, PARACETAMOL, PARACETAMOL DIRECT COMP [Suspect]
     Dosage: 10 MG ONCE DAILY ORAL
     Route: 048
     Dates: start: 20070306
  7. ACETYLSALICYLIC ACID SRT [Concomitant]
  8. METOCLOPRAMIDE [Concomitant]
  9. POTASSIUM CHLORIDE [Concomitant]

REACTIONS (5)
  - ALANINE AMINOTRANSFERASE INCREASED [None]
  - BLOOD ALBUMIN INCREASED [None]
  - BLOOD ALKALINE PHOSPHATASE INCREASED [None]
  - BLOOD BILIRUBIN INCREASED [None]
  - GAMMA-GLUTAMYLTRANSFERASE INCREASED [None]
